FAERS Safety Report 9057066 (Version 2)
Quarter: 2013Q1

REPORT INFORMATION
  Report Type: Spontaneous
  Country: FR (occurrence: FR)
  Receive Date: 20130131
  Receipt Date: 20130204
  Transmission Date: 20140127
  Serious: Yes (Hospitalization, Other)
  Sender: FDA-Public Use
  Company Number: FR-PFIZER INC-2013029041

PATIENT
  Age: 66 Year
  Sex: Male

DRUGS (8)
  1. CHAMPIX [Suspect]
     Indication: SMOKING CESSATION THERAPY
     Dosage: 0.5 MG, 1X/DAY
     Route: 048
     Dates: start: 20120820, end: 20120823
  2. MICARDIS [Concomitant]
     Dosage: UNK
  3. NITRIDERM [Concomitant]
     Dosage: UNK
  4. KARDEGIC [Concomitant]
     Dosage: UNK
  5. SERTRALINE HYDROCHLORIDE [Concomitant]
     Dosage: UNK
  6. PARIET [Concomitant]
     Dosage: UNK
  7. BIPERIDYS [Concomitant]
     Dosage: UNK
  8. FENOFIBRATE [Concomitant]
     Dosage: UNK

REACTIONS (5)
  - Nausea [Recovered/Resolved]
  - Vomiting [Recovered/Resolved]
  - Diarrhoea [Recovered/Resolved]
  - General physical health deterioration [Recovering/Resolving]
  - Systemic inflammatory response syndrome [Recovering/Resolving]
